FAERS Safety Report 24442081 (Version 2)
Quarter: 2024Q4

REPORT INFORMATION
  Report Type: Report from Study
  Country: US (occurrence: US)
  Receive Date: 20241016
  Receipt Date: 20241017
  Transmission Date: 20250114
  Serious: No
  Sender: ROCHE
  Company Number: US-ROCHE-3535903

PATIENT
  Age: 12 Year
  Sex: Male

DRUGS (4)
  1. HEMLIBRA [Suspect]
     Active Substance: EMICIZUMAB-KXWH
     Indication: Factor VIII deficiency
     Dosage: 3 MG/KG (120 MG) EVERY 7 DAYS X 4 LOADING DOSES  1.5 MG/KG (60 MG) EVERY 7 DAYS
     Route: 058
     Dates: start: 20240325
  2. HEMLIBRA [Suspect]
     Active Substance: EMICIZUMAB-KXWH
     Indication: Haemorrhagic disorder
  3. AMICAR [Concomitant]
     Active Substance: AMINOCAPROIC ACID
  4. NOVOSEVEN [Concomitant]
     Active Substance: COAGULATION FACTOR VIIA RECOMBINANT HUMAN

REACTIONS (2)
  - Product prescribing error [Unknown]
  - No adverse event [Unknown]
